FAERS Safety Report 5248353-9 (Version None)
Quarter: 2007Q1

REPORT INFORMATION
  Report Type: 
  Country: None (occurrence: None)
  Receive Date: 20070222
  Receipt Date: 20050708
  Transmission Date: 20070707
  Serious: Yes (Hospitalization)
  Sender: FDA-Public Use
  Company Number: 236635

PATIENT
  Age: 66 Year
  Sex: Female
  Weight: 51.8 kg

DRUGS (7)
  1. AVASTIN [Suspect]
     Indication: COLORECTAL CANCER METASTATIC
     Dosage: 400 MG, Q3W, INTRAVENOUS
     Route: 042
     Dates: start: 20050218
  2. CAPECITABINE (CAPECITABINE) [Suspect]
     Indication: COLORECTAL CANCER METASTATIC
     Dosage: 1500 MG, BID, ORAL
     Route: 048
     Dates: start: 20050218
  3. OXALIPLATIN [Suspect]
     Indication: COLORECTAL CANCER METASTATIC
     Dosage: 195 MG, Q3W, INTRAVENOUS
     Route: 042
     Dates: start: 20050218
  4. MOTILIUM [Concomitant]
  5. LANSOPRAZOLE [Concomitant]
  6. BETALOC (METOPROLOL TARTRATE) [Concomitant]
  7. CENTYL K (BENDROFLUMETHIAZIDE, POTASSIUM CHLORIDE) [Concomitant]

REACTIONS (9)
  - BLOOD POTASSIUM DECREASED [None]
  - DEHYDRATION [None]
  - DIARRHOEA [None]
  - DRUG TOXICITY [None]
  - HAEMOGLOBIN DECREASED [None]
  - NEUTROPHIL COUNT INCREASED [None]
  - PLATELET COUNT DECREASED [None]
  - PYREXIA [None]
  - VIRAL INFECTION [None]
